FAERS Safety Report 10925374 (Version 1)
Quarter: 2015Q1

REPORT INFORMATION
  Report Type: Spontaneous
  Country: SG (occurrence: None)
  Receive Date: 20150313
  Receipt Date: 20150313
  Transmission Date: 20150721
  Serious: Yes (Death)
  Sender: FDA-Public Use
  Company Number: SG-DRAXIINC-000404

PATIENT
  Age: 65 Year
  Sex: Female

DRUGS (1)
  1. RADIOACTIVE IODINE [Suspect]
     Active Substance: SODIUM IODIDE I-131
     Indication: FOLLICULAR THYROID CANCER
     Dosage: 1 X 250 MCI/5 MONTH (S)

REACTIONS (1)
  - Intraventricular haemorrhage [None]
